FAERS Safety Report 4413245-1 (Version None)
Quarter: 2004Q3

REPORT INFORMATION
  Report Type: 
  Country: None (occurrence: None)
  Receive Date: 20040802
  Receipt Date: 20040708
  Transmission Date: 20050211
  Serious: Yes (Other)
  Sender: FDA-Public Use
  Company Number: PHEH2004US07338

PATIENT
  Age: 51 Year
  Sex: Female
  Weight: 91 kg

DRUGS (40)
  1. ZOMETA [Suspect]
     Indication: METASTASES TO BONE
     Dosage: 4 MG, QMO
     Route: 042
     Dates: start: 20030601
  2. TRASTUZUMAB [Concomitant]
     Dosage: 4 MG/KG/WEEKLY
  3. TRASTUZUMAB [Concomitant]
     Dosage: 2 MG/KG/WEEKLY
  4. TAXOL [Concomitant]
     Dosage: 80 MG/M2
     Route: 042
  5. ALTACE [Concomitant]
  6. IRON SUPPLEMENTS [Concomitant]
  7. SYNTHROID [Concomitant]
  8. CALCIUM [Concomitant]
  9. PAXIL [Concomitant]
  10. FUROSEMIDE [Concomitant]
  11. NEUPOGEN [Concomitant]
  12. DECADRON [Concomitant]
     Dosage: 10 MG, UNK
     Dates: start: 20010802
  13. TYLENOL [Concomitant]
     Indication: PROPHYLAXIS
     Dosage: 650 MG, UNK
     Route: 048
  14. DIPHENHYDRAMINE HCL [Concomitant]
     Indication: PROPHYLAXIS
     Dosage: 25 MG, UNK
     Route: 048
  15. PEPCID [Concomitant]
     Dosage: 20 MG, UNK
     Route: 042
  16. ANZEMET [Concomitant]
     Dosage: 100 MG, UNK
     Route: 042
     Dates: start: 20010803
  17. CARBOPLATIN [Concomitant]
     Route: 044
  18. CYTOXAN [Concomitant]
  19. EPIRUBICIN [Concomitant]
  20. FLUOROURACIL [Concomitant]
  21. PROCRIT [Concomitant]
  22. LEVAQUIN [Concomitant]
  23. ALLEGRA [Concomitant]
  24. SLOW-FE [Concomitant]
  25. ZANTAC [Concomitant]
  26. SENOKOT [Concomitant]
  27. MULTI-VITAMINS [Concomitant]
  28. XANAX [Concomitant]
  29. SKELAXIN [Concomitant]
  30. LORTAB [Concomitant]
  31. VIOXX [Concomitant]
  32. SYNTHROID [Concomitant]
  33. ADVIL [Concomitant]
  34. ARANESP [Concomitant]
  35. NEURONTIN [Concomitant]
  36. CALCIUM [Concomitant]
  37. CELEBREX [Concomitant]
  38. BIAXIN XL [Concomitant]
  39. TUSSIONEX [Concomitant]
  40. FUROSEMIDE [Concomitant]

REACTIONS (11)
  - BLOOD LACTATE DEHYDROGENASE INCREASED [None]
  - GOITRE [None]
  - HEPATIC CIRRHOSIS [None]
  - HEPATIC LESION [None]
  - HEPATIC NEOPLASM [None]
  - INFLAMMATION [None]
  - LIVER FUNCTION TEST ABNORMAL [None]
  - LUNG INFILTRATION [None]
  - POSITRON EMISSION TOMOGRAM ABNORMAL [None]
  - SPLENOMEGALY [None]
  - UTERINE LEIOMYOMA [None]
